FAERS Safety Report 12741743 (Version 1)
Quarter: 2016Q3

REPORT INFORMATION
  Report Type: Spontaneous
  Country: FR (occurrence: FR)
  Receive Date: 20160914
  Receipt Date: 20160914
  Transmission Date: 20161109
  Serious: Yes (Hospitalization)
  Sender: FDA-Public Use
  Company Number: FR-SA-2016SA165103

PATIENT
  Age: 81 Year
  Sex: Female

DRUGS (5)
  1. LOVENOX [Suspect]
     Active Substance: ENOXAPARIN SODIUM
     Indication: THROMBOSIS PROPHYLAXIS
     Route: 058
     Dates: start: 20150805, end: 20150813
  2. COOLMETEC [Concomitant]
     Active Substance: HYDROCHLOROTHIAZIDE\OLMESARTAN MEDOXOMIL
     Dosage: STRENGTH HAS BEEN MENTIONED AS 20MG/25MG, SO DAILY DOSE CANNOT BE CALCULATED.
     Route: 048
  3. TEMERIT [Concomitant]
     Active Substance: NEBIVOLOL
     Route: 048
  4. AUGMENTIN [Suspect]
     Active Substance: AMOXICILLIN\CLAVULANATE POTASSIUM
     Indication: ERYSIPELAS
     Dosage: FORM - TABLET FOR ORAL SUSPENSION.
     Route: 048
     Dates: start: 20150805, end: 20150813
  5. ULTRA-LEVURE [Suspect]
     Active Substance: SACCHAROMYCES CEREVISIAE
     Route: 048
     Dates: start: 20150805, end: 20150813

REACTIONS (1)
  - Drug reaction with eosinophilia and systemic symptoms [Recovered/Resolved]

NARRATIVE: CASE EVENT DATE: 20150825
